FAERS Safety Report 10657248 (Version 3)
Quarter: 2015Q2

REPORT INFORMATION
  Report Type: Spontaneous
  Country: US (occurrence: US)
  Receive Date: 20141217
  Receipt Date: 20150617
  Transmission Date: 20150821
  Serious: Yes (Hospitalization, Other)
  Sender: FDA-Public Use
  Company Number: US-BAYER-2014-185255

PATIENT
  Age: 23 Year
  Sex: Female
  Weight: 63.49 kg

DRUGS (1)
  1. MIRENA [Suspect]
     Active Substance: LEVONORGESTREL
     Indication: CONTRACEPTION
     Dosage: 20 MCG/24HR, CONT
     Route: 015
     Dates: start: 20090306, end: 20130415

REACTIONS (11)
  - Abdominal pain lower [None]
  - Impaired work ability [None]
  - Pain [None]
  - Procedural pain [None]
  - Uterine perforation [None]
  - Genital haemorrhage [None]
  - Device dislocation [None]
  - Delayed recovery from anaesthesia [None]
  - Injury [None]
  - Device difficult to use [None]
  - Abdominal pain [None]

NARRATIVE: CASE EVENT DATE: 200903
